FAERS Safety Report 12699320 (Version 3)
Quarter: 2017Q2

REPORT INFORMATION
  Report Type: Spontaneous
  Country: US (occurrence: US)
  Receive Date: 20160830
  Receipt Date: 20170413
  Transmission Date: 20170830
  Serious: No
  Sender: FDA-Public Use
  Company Number: US-INCYTE CORPORATION-2016IN005249

PATIENT
  Sex: Female

DRUGS (3)
  1. JAKAFI [Suspect]
     Active Substance: RUXOLITINIB
     Dosage: 5 MG, BID
     Route: 048
     Dates: start: 20160707
  2. JAKAFI [Suspect]
     Active Substance: RUXOLITINIB
     Dosage: 10 MG, BID
     Route: 048
     Dates: start: 20160630
  3. JAKAFI [Suspect]
     Active Substance: RUXOLITINIB
     Dosage: ONE PILL IN THE MORNING AND ONE PILL AT NIGHT
     Route: 048
     Dates: start: 20170403

REACTIONS (4)
  - Somnolence [Unknown]
  - Therapeutic response unexpected [Unknown]
  - Fatigue [Unknown]
  - Anaemia [Unknown]
